FAERS Safety Report 5205541-5 (Version None)
Quarter: 2006Q4

REPORT INFORMATION
  Report Type: 
  Country: None (occurrence: None)
  Receive Date: 20061027
  Receipt Date: 20060821
  Transmission Date: 20070319
  Serious: No
  Sender: FDA-Public Use
  Company Number: 200613992US

PATIENT
  Age: 28 Year
  Sex: Female

DRUGS (1)
  1. KETEK [Suspect]
     Indication: EAR INFECTION
     Dosage: 2X800 MG QD PO
     Route: 048
     Dates: start: 20060501

REACTIONS (2)
  - DIARRHOEA [None]
  - VISION BLURRED [None]
